FAERS Safety Report 8409771 (Version 2)
Quarter: 2012Q4

REPORT INFORMATION
  Report Type: 
  Country: US (occurrence: US)
  Receive Date: 20120216
  Receipt Date: 20120921
  Transmission Date: 20130627
  Serious: No
  Sender: FDA-Public Use
  Company Number: US-ASTRAZENECA-2011SE77430

PATIENT
  Age: 43 Year
  Sex: Male
  Weight: 56.7 kg

DRUGS (4)
  1. LISINOPRIL [Suspect]
     Route: 048
     Dates: start: 20111021, end: 20111030
  2. BRILINTA [Suspect]
     Route: 048
  3. ASA [Concomitant]
  4. LOPRESSOR [Concomitant]

REACTIONS (4)
  - Feeling hot [Recovered/Resolved]
  - Flushing [Recovered/Resolved]
  - Burning sensation [Recovered/Resolved]
  - Rash [Recovered/Resolved]
